FAERS Safety Report 6162793-5 (Version None)
Quarter: 2009Q2

REPORT INFORMATION
  Report Type: 
  Country: None (occurrence: None)
  Receive Date: 20090421
  Receipt Date: 20080811
  Transmission Date: 20091009
  Serious: No
  Sender: FDA-Public Use
  Company Number: US-ASTRAZENECA-2008UW15868

PATIENT
  Age: 78 Year
  Sex: Female
  Weight: 71.7 kg

DRUGS (4)
  1. TOPROL-XL [Suspect]
     Route: 048
  2. ZESTORETIC [Concomitant]
  3. CALCIUM [Concomitant]
  4. VITAMIN [Concomitant]

REACTIONS (2)
  - BRADYCARDIA [None]
  - PURPURA [None]
